FAERS Safety Report 12091497 (Version 33)
Quarter: 2025Q3

REPORT INFORMATION
  Report Type: Spontaneous
  Country: CA (occurrence: CA)
  Receive Date: 20160218
  Receipt Date: 20250716
  Transmission Date: 20251020
  Serious: Yes (Other)
  Sender: PFIZER
  Company Number: CA-PFIZER INC-2016085227

PATIENT
  Age: 65 Year
  Sex: Female

DRUGS (91)
  1. ENBREL [Suspect]
     Active Substance: ETANERCEPT
     Indication: Rheumatoid arthritis
     Route: 058
  2. ENBREL [Suspect]
     Active Substance: ETANERCEPT
     Dosage: 50 MG, WEEKLY (50 MILLIGRAM, QWK)
     Route: 058
  3. ENBREL [Suspect]
     Active Substance: ETANERCEPT
  4. ENBREL [Suspect]
     Active Substance: ETANERCEPT
     Route: 058
  5. ENBREL [Suspect]
     Active Substance: ETANERCEPT
  6. XELJANZ [Suspect]
     Active Substance: TOFACITINIB CITRATE
     Indication: Rheumatoid arthritis
     Dosage: 5 MILLIGRAM, BID
     Route: 048
  7. XELJANZ [Suspect]
     Active Substance: TOFACITINIB CITRATE
     Dosage: 5 NANOGRAM, BID
  8. XELJANZ [Suspect]
     Active Substance: TOFACITINIB CITRATE
     Dosage: 5 MILLIGRAM, BID
  9. XELJANZ [Suspect]
     Active Substance: TOFACITINIB CITRATE
  10. XELJANZ [Suspect]
     Active Substance: TOFACITINIB CITRATE
     Dosage: 10 MILLIGRAM, QD
  11. XELJANZ [Suspect]
     Active Substance: TOFACITINIB CITRATE
  12. SULFASALAZINE [Suspect]
     Active Substance: SULFASALAZINE
     Indication: Rheumatoid arthritis
  13. SULFASALAZINE [Suspect]
     Active Substance: SULFASALAZINE
     Dosage: 500 MILLIGRAM, QD
     Route: 048
  14. SULFASALAZINE [Suspect]
     Active Substance: SULFASALAZINE
  15. METHOTREXATE SODIUM [Suspect]
     Active Substance: METHOTREXATE SODIUM
     Indication: Rheumatoid arthritis
     Route: 058
  16. METHOTREXATE SODIUM [Suspect]
     Active Substance: METHOTREXATE SODIUM
     Dosage: 25 MILLIGRAM, QWK
     Route: 058
  17. METHOTREXATE SODIUM [Suspect]
     Active Substance: METHOTREXATE SODIUM
     Route: 058
  18. METHOTREXATE SODIUM [Suspect]
     Active Substance: METHOTREXATE SODIUM
     Route: 058
  19. METHOTREXATE SODIUM [Suspect]
     Active Substance: METHOTREXATE SODIUM
     Route: 058
  20. METHOTREXATE SODIUM [Suspect]
     Active Substance: METHOTREXATE SODIUM
     Route: 058
  21. METHOTREXATE SODIUM [Suspect]
     Active Substance: METHOTREXATE SODIUM
     Route: 058
  22. METHOTREXATE SODIUM [Suspect]
     Active Substance: METHOTREXATE SODIUM
  23. CODEINE [Suspect]
     Active Substance: CODEINE
  24. TETRACYCLINE HYDROCHLORIDE [Suspect]
     Active Substance: TETRACYCLINE HYDROCHLORIDE
     Route: 065
  25. TETRACYCLINE HYDROCHLORIDE [Suspect]
     Active Substance: TETRACYCLINE HYDROCHLORIDE
     Route: 065
  26. RITUXIMAB [Suspect]
     Active Substance: RITUXIMAB
     Indication: Rheumatoid arthritis
  27. RITUXIMAB [Suspect]
     Active Substance: RITUXIMAB
     Route: 041
  28. RITUXIMAB [Suspect]
     Active Substance: RITUXIMAB
     Route: 041
  29. RITUXIMAB [Suspect]
     Active Substance: RITUXIMAB
     Route: 041
  30. RITUXIMAB [Suspect]
     Active Substance: RITUXIMAB
     Route: 041
  31. RITUXIMAB [Suspect]
     Active Substance: RITUXIMAB
     Route: 041
  32. RITUXIMAB [Suspect]
     Active Substance: RITUXIMAB
     Route: 041
  33. RITUXIMAB [Suspect]
     Active Substance: RITUXIMAB
     Route: 040
  34. PLAQUENIL [Suspect]
     Active Substance: HYDROXYCHLOROQUINE SULFATE
     Indication: Rheumatoid arthritis
  35. PLAQUENIL [Suspect]
     Active Substance: HYDROXYCHLOROQUINE SULFATE
  36. PLAQUENIL [Suspect]
     Active Substance: HYDROXYCHLOROQUINE SULFATE
     Dosage: 200 MG, 2X/DAY
     Route: 048
  37. HUMIRA [Suspect]
     Active Substance: ADALIMUMAB
     Indication: Rheumatoid arthritis
     Route: 058
  38. HUMIRA [Suspect]
     Active Substance: ADALIMUMAB
     Dosage: 40 MG, 2X/WEEK
  39. HUMIRA [Suspect]
     Active Substance: ADALIMUMAB
  40. HUMIRA [Suspect]
     Active Substance: ADALIMUMAB
     Route: 058
  41. HUMIRA [Suspect]
     Active Substance: ADALIMUMAB
     Route: 058
  42. HUMIRA [Suspect]
     Active Substance: ADALIMUMAB
     Dosage: 80 MG, WEEKLY
  43. HUMIRA [Suspect]
     Active Substance: ADALIMUMAB
  44. RITUXAN [Suspect]
     Active Substance: RITUXIMAB
     Indication: Rheumatoid arthritis
     Route: 042
  45. RITUXAN [Suspect]
     Active Substance: RITUXIMAB
     Route: 065
  46. RITUXAN [Suspect]
     Active Substance: RITUXIMAB
     Route: 041
  47. AZATHIOPRINE [Suspect]
     Active Substance: AZATHIOPRINE
     Indication: Rheumatoid arthritis
  48. AZATHIOPRINE [Suspect]
     Active Substance: AZATHIOPRINE
     Route: 065
  49. MINOCYCLINE HYDROCHLORIDE [Suspect]
     Active Substance: MINOCYCLINE HYDROCHLORIDE
     Indication: Rheumatoid arthritis
  50. MINOCYCLINE HYDROCHLORIDE [Suspect]
     Active Substance: MINOCYCLINE HYDROCHLORIDE
     Dates: start: 2006
  51. MINOCYCLINE HYDROCHLORIDE [Suspect]
     Active Substance: MINOCYCLINE HYDROCHLORIDE
     Dates: start: 2006
  52. MINOCYCLINE [Suspect]
     Active Substance: MINOCYCLINE HYDROCHLORIDE
  53. MINOCYCLINE [Suspect]
     Active Substance: MINOCYCLINE HYDROCHLORIDE
  54. AZATHIOPRINE [Suspect]
     Active Substance: AZATHIOPRINE
  55. ARAVA [Suspect]
     Active Substance: LEFLUNOMIDE
     Indication: Rheumatoid arthritis
     Dosage: 20 MILLIGRAM, QWK
     Route: 048
  56. ARAVA [Suspect]
     Active Substance: LEFLUNOMIDE
     Route: 048
  57. ARAVA [Suspect]
     Active Substance: LEFLUNOMIDE
  58. ARAVA [Suspect]
     Active Substance: LEFLUNOMIDE
     Dosage: 20 MILLIGRAM, QD
     Route: 048
  59. MINOCYCLINE [Suspect]
     Active Substance: MINOCYCLINE HYDROCHLORIDE
  60. ORENCIA [Suspect]
     Active Substance: ABATACEPT
     Indication: Rheumatoid arthritis
     Dosage: 1 DF, MONTHLY
  61. HYDROXYCHLOROQUINE SULFATE [Suspect]
     Active Substance: HYDROXYCHLOROQUINE SULFATE
     Route: 048
  62. HYDROXYCHLOROQUINE SULFATE [Suspect]
     Active Substance: HYDROXYCHLOROQUINE SULFATE
  63. HYDROXYCHLOROQUINE SULFATE [Suspect]
     Active Substance: HYDROXYCHLOROQUINE SULFATE
  64. HYDROXYCHLOROQUINE SULFATE [Suspect]
     Active Substance: HYDROXYCHLOROQUINE SULFATE
  65. HYDROXYCHLOROQUINE SULFATE [Suspect]
     Active Substance: HYDROXYCHLOROQUINE SULFATE
     Indication: Rheumatoid arthritis
  66. HYDROXYCHLOROQUINE SULFATE [Suspect]
     Active Substance: HYDROXYCHLOROQUINE SULFATE
  67. COSENTYX [Suspect]
     Active Substance: SECUKINUMAB
  68. TALTZ [Suspect]
     Active Substance: IXEKIZUMAB
  69. HYDROXYCHLOROQUINE [Suspect]
     Active Substance: HYDROXYCHLOROQUINE
     Indication: Rheumatoid arthritis
     Route: 058
  70. HYDROXYCHLOROQUINE [Suspect]
     Active Substance: HYDROXYCHLOROQUINE
  71. HYDROXYCHLOROQUINE [Suspect]
     Active Substance: HYDROXYCHLOROQUINE
  72. HYDROXYCHLOROQUINE [Suspect]
     Active Substance: HYDROXYCHLOROQUINE
     Route: 048
  73. HYDROXYCHLOROQUINE [Suspect]
     Active Substance: HYDROXYCHLOROQUINE
  74. LEFLUNOMIDE [Concomitant]
     Active Substance: LEFLUNOMIDE
     Indication: Rheumatoid arthritis
     Route: 065
  75. LEFLUNOMIDE [Concomitant]
     Active Substance: LEFLUNOMIDE
     Route: 065
  76. AMOXIL [AMOXICILLIN SODIUM] [Concomitant]
  77. GOLD [Concomitant]
     Active Substance: GOLD
  78. AMOXICILLIN\CLAVULANATE POTASSIUM [Concomitant]
     Active Substance: AMOXICILLIN\CLAVULANATE POTASSIUM
  79. AMOXICILLIN\CLAVULANATE POTASSIUM [Concomitant]
     Active Substance: AMOXICILLIN\CLAVULANATE POTASSIUM
  80. AMOXICILLIN\CLAVULANATE POTASSIUM [Concomitant]
     Active Substance: AMOXICILLIN\CLAVULANATE POTASSIUM
  81. BCG VACCINE [Concomitant]
     Active Substance: BCG VACCINE
     Route: 042
  82. BCG VACCINE [Concomitant]
     Active Substance: BCG VACCINE
     Route: 042
  83. BCG VACCINE [Concomitant]
     Active Substance: BCG VACCINE
     Route: 065
  84. ADALIMUMAB [Concomitant]
     Active Substance: ADALIMUMAB
     Route: 065
  85. AMOXICILLIN\CLAVULANATE POTASSIUM [Concomitant]
     Active Substance: AMOXICILLIN\CLAVULANATE POTASSIUM
  86. AMOXICILLIN\CLAVULANATE POTASSIUM [Concomitant]
     Active Substance: AMOXICILLIN\CLAVULANATE POTASSIUM
  87. RISEDRONATE SODIUM [Concomitant]
     Active Substance: RISEDRONATE SODIUM
     Dosage: 35 MILLIGRAM, QWK
     Route: 048
  88. AMOXICILLIN [Concomitant]
     Active Substance: AMOXICILLIN
  89. AMOXIL [Concomitant]
     Active Substance: AMOXICILLIN
     Route: 065
  90. PREDNISONE [Concomitant]
     Active Substance: PREDNISONE
     Indication: Psoriatic arthropathy
     Route: 065
  91. AMOXICILLIN SODIUM [Concomitant]
     Active Substance: AMOXICILLIN SODIUM

REACTIONS (10)
  - Drug ineffective [Unknown]
  - Non-Hodgkin^s lymphoma [Unknown]
  - Drug intolerance [Unknown]
  - Rheumatoid arthritis [Unknown]
  - Arthralgia [Unknown]
  - Joint swelling [Unknown]
  - Drug hypersensitivity [Unknown]
  - Tuberculin test positive [Unknown]
  - Off label use [Unknown]
  - Product use issue [Unknown]
